FAERS Safety Report 8095037-8 (Version None)
Quarter: 2012Q1

REPORT INFORMATION
  Report Type: 
  Country: None (occurrence: None)
  Receive Date: 20120131
  Receipt Date: 20120131
  Transmission Date: 20120608
  Serious: Yes (Life-Threatening, Other)
  Sender: FDA-Public Use
  Company Number: None

PATIENT
  Age: 62 Year
  Sex: Female
  Weight: 104.32 kg

DRUGS (1)
  1. ALL NATURAL FISH OIL ^HEART HEAL [Suspect]
     Indication: CARDIAC DISORDER
     Dosage: 1000MG
     Route: 048
     Dates: start: 20120121, end: 20120121

REACTIONS (7)
  - DIZZINESS [None]
  - INFLUENZA [None]
  - HEADACHE [None]
  - DIARRHOEA [None]
  - FLUSHING [None]
  - SOMNOLENCE [None]
  - HEART RATE INCREASED [None]
